FAERS Safety Report 23972304 (Version 1)
Quarter: 2024Q2

REPORT INFORMATION
  Report Type: Spontaneous
  Country: US (occurrence: US)
  Receive Date: 20240613
  Receipt Date: 20240613
  Transmission Date: 20240715
  Serious: Yes (Other)
  Sender: FDA-Public Use
  Company Number: US-SA-SAC20240607001153

PATIENT
  Age: 15 Year
  Sex: Male

DRUGS (1)
  1. DUPIXENT [Suspect]
     Active Substance: DUPILUMAB
     Indication: Eosinophilic oesophagitis
     Dosage: 2 MG, QW
     Route: 058
     Dates: start: 202307

REACTIONS (6)
  - Vomiting [Recovered/Resolved]
  - Gait inability [Unknown]
  - Paraesthesia [Unknown]
  - Pain in extremity [Unknown]
  - Dehydration [Unknown]
  - Incorrect dose administered [Unknown]

NARRATIVE: CASE EVENT DATE: 20230701
